FAERS Safety Report 19974621 (Version 5)
Quarter: 2022Q2

REPORT INFORMATION
  Report Type: Report from Study
  Country: US (occurrence: US)
  Receive Date: 20211020
  Receipt Date: 20220505
  Transmission Date: 20220721
  Serious: Yes (Hospitalization, Other)
  Sender: FDA-Public Use
  Company Number: US-NOVARTISPH-NVSC2021US237838

PATIENT
  Sex: Female

DRUGS (1)
  1. ENTRESTO [Suspect]
     Active Substance: SACUBITRIL\VALSARTAN
     Indication: Product used for unknown indication
     Dosage: 2 DOSAGE FORM (49/51), QD
     Route: 048
     Dates: start: 20170129, end: 20190901

REACTIONS (13)
  - Myocardial infarction [Unknown]
  - Asthenia [Unknown]
  - Diabetes mellitus [Unknown]
  - Cardiac dysfunction [Unknown]
  - Limb crushing injury [Unknown]
  - Dyspnoea [Unknown]
  - Palpitations [Unknown]
  - Blood potassium decreased [Unknown]
  - Blood magnesium decreased [Unknown]
  - Thyroid hormones increased [Unknown]
  - Blood disorder [Unknown]
  - White blood cell count increased [Unknown]
  - Inappropriate schedule of product administration [Unknown]
